FAERS Safety Report 22210042 (Version 1)
Quarter: 2023Q2

REPORT INFORMATION
  Report Type: Spontaneous
  Country: DE (occurrence: None)
  Receive Date: 20230414
  Receipt Date: 20230414
  Transmission Date: 20230722
  Serious: Yes (Other)
  Sender: FDA-Public Use
  Company Number: DE-ADIENNEP-2023AD000291

PATIENT
  Sex: Male

DRUGS (4)
  1. THIOTEPA [Suspect]
     Active Substance: THIOTEPA
     Indication: Allogenic stem cell transplantation
     Dosage: ()
     Dates: start: 2018, end: 2018
  2. FLUDARABINE [Suspect]
     Active Substance: FLUDARABINE PHOSPHATE
     Indication: Allogenic stem cell transplantation
     Dosage: ()
     Dates: start: 2018, end: 2018
  3. TREOSULFAN [Suspect]
     Active Substance: TREOSULFAN
     Indication: Allogenic stem cell transplantation
     Dosage: ()
     Dates: start: 2018, end: 2018
  4. THYMOCYTE IMMUNE GLOBULIN NOS [Suspect]
     Active Substance: THYMOCYTE IMMUNE GLOBULIN NOS
     Indication: Allogenic stem cell transplantation
     Dosage: ()
     Dates: start: 2018, end: 2018

REACTIONS (6)
  - Bronchopulmonary aspergillosis [Unknown]
  - Haemophagocytic lymphohistiocytosis [Unknown]
  - Thrombotic microangiopathy [Unknown]
  - Chronic kidney disease [Unknown]
  - Respiratory failure [Unknown]
  - Pulmonary arterial hypertension [Unknown]
